FAERS Safety Report 11040120 (Version 4)
Quarter: 2015Q4

REPORT INFORMATION
  Report Type: Spontaneous
  Country: US (occurrence: US)
  Receive Date: 20150416
  Receipt Date: 20151005
  Transmission Date: 20160304
  Serious: No
  Sender: FDA-Public Use
  Company Number: US-PFIZER INC-2015127622

PATIENT
  Age: 72 Year
  Sex: Female
  Weight: 88 kg

DRUGS (31)
  1. HYDROCHLOROTHIAZIDE. [Concomitant]
     Active Substance: HYDROCHLOROTHIAZIDE
     Dosage: 50 MG, DAILY
     Route: 048
     Dates: start: 20150129
  2. METHOTREXATE SODIUM. [Concomitant]
     Active Substance: METHOTREXATE SODIUM
     Dosage: 2.5 MG, 10 TABLETS ONCE WEEKLY
     Dates: start: 2005
  3. METHOTREXATE SODIUM. [Concomitant]
     Active Substance: METHOTREXATE SODIUM
     Dosage: 25 MG (10 TABLETS OF 2.5 MG), WEEKLY
     Dates: start: 20150313
  4. RANITIDINE [Concomitant]
     Active Substance: RANITIDINE\RANITIDINE HYDROCHLORIDE
     Dosage: 150 MG, 2X/DAY
     Route: 048
     Dates: start: 2012
  5. LOMOTIL [Concomitant]
     Active Substance: ATROPINE SULFATE\DIPHENOXYLATE HYDROCHLORIDE
     Dosage: UNK, AS DIRECTED
     Dates: start: 20131115
  6. METOPROLOL TARTRATE. [Concomitant]
     Active Substance: METOPROLOL TARTRATE
     Dosage: 25 MG, DAILY
     Route: 048
  7. XELJANZ [Suspect]
     Active Substance: TOFACITINIB CITRATE
     Indication: RHEUMATOID ARTHRITIS
     Dosage: UNK
  8. METOPROLOL [Concomitant]
     Active Substance: METOPROLOL
     Dosage: 25 MG, DAILY
     Route: 048
     Dates: start: 2005
  9. HYDROCHLOROTHIAZIDE. [Concomitant]
     Active Substance: HYDROCHLOROTHIAZIDE
     Dosage: 50 MG, DAILY
     Route: 048
     Dates: start: 2008
  10. KLORCON [Concomitant]
     Dosage: 10 MEQ, DAILY
     Route: 048
     Dates: start: 2008
  11. TRAZODONE [Concomitant]
     Active Substance: TRAZODONE HYDROCHLORIDE
     Dosage: 50 MG, DAILY
     Route: 048
     Dates: start: 2010
  12. PREDNISONE. [Concomitant]
     Active Substance: PREDNISONE
     Dosage: 5 MG, DAILY
     Route: 048
     Dates: start: 2014
  13. RANITIDINE [Concomitant]
     Active Substance: RANITIDINE\RANITIDINE HYDROCHLORIDE
     Dosage: 150 MG, 2X/DAY
     Route: 048
     Dates: start: 20140926
  14. VOLTAREN [Concomitant]
     Active Substance: DICLOFENAC SODIUM
     Dosage: 1 G, 4X/DAY
     Route: 061
     Dates: start: 20150317
  15. XELJANZ [Suspect]
     Active Substance: TOFACITINIB CITRATE
     Indication: QUALITY OF LIFE DECREASED
     Dosage: 5 MG, 2X/DAY
     Route: 048
     Dates: start: 20150129
  16. CLONAZEPAM. [Concomitant]
     Active Substance: CLONAZEPAM
     Dosage: 1 MG, DAILY
     Route: 048
     Dates: start: 2010
  17. CLONAZEPAM. [Concomitant]
     Active Substance: CLONAZEPAM
     Dosage: 1 DF, 1X/DAY
     Route: 048
     Dates: start: 20141223
  18. FOLIC ACID. [Concomitant]
     Active Substance: FOLIC ACID
     Dosage: 1 MG, DAILY
     Route: 048
     Dates: start: 2010
  19. FOLIC ACID. [Concomitant]
     Active Substance: FOLIC ACID
     Dosage: 1 MG, DAILY
     Route: 048
     Dates: start: 20140218
  20. LISINOPRIL. [Concomitant]
     Active Substance: LISINOPRIL
     Dosage: 20 MG, DAILY
     Route: 048
     Dates: start: 1997
  21. PREDNISONE. [Concomitant]
     Active Substance: PREDNISONE
     Dosage: 5 MG, DAILY
     Route: 048
     Dates: start: 20150119
  22. HYDROCODONE BITARTRATE AND ACETAMINOPHEN [Concomitant]
     Active Substance: ACETAMINOPHEN\HYDROCODONE BITARTRATE
     Dosage: 10MG/325MG, AS NEEDED
     Route: 048
     Dates: start: 2008
  23. TRAZODONE [Concomitant]
     Active Substance: TRAZODONE HYDROCHLORIDE
     Dosage: 50 MG, 1X/DAY (AT BED TIME)
     Route: 048
     Dates: start: 20141223
  24. DEPO-MEDROL [Concomitant]
     Active Substance: METHYLPREDNISOLONE ACETATE
     Dosage: 80 UNK, UNK
  25. MEDROL [Concomitant]
     Active Substance: METHYLPREDNISOLONE
     Dosage: UNK (4 MG TABLETS IN A DOSE PACK), AS NEEDED
     Route: 048
     Dates: start: 20150312
  26. XELJANZ [Suspect]
     Active Substance: TOFACITINIB CITRATE
     Dosage: 5 MG, 2X/DAY
     Route: 048
     Dates: start: 201502
  27. DURAGESIC [Concomitant]
     Active Substance: FENTANYL
     Dosage: 75 ?G/HR EVERY 72 HOURS
     Route: 062
     Dates: start: 2013
  28. DURAGESIC [Concomitant]
     Active Substance: FENTANYL
     Dosage: 75 (MCG/HR), APPLY 1 PATCH EVERY 72 HOURS
     Route: 062
     Dates: start: 20150224
  29. HYDROCODONE BITARTRATE AND ACETAMINOPHEN [Concomitant]
     Active Substance: ACETAMINOPHEN\HYDROCODONE BITARTRATE
     Dosage: 10MG/325MG, EVERY 6 HOURS AS NEEDED
     Route: 048
     Dates: start: 20150302
  30. PROBIOTIC /06395501/ [Concomitant]
     Active Substance: BIFIDOBACTERIUM ANIMALIS SUBSP. LACTIS
     Indication: PROPHYLAXIS
     Dosage: 1 DF, DAILY
  31. PROMETHAZINE [Concomitant]
     Active Substance: PROMETHAZINE\PROMETHAZINE HYDROCHLORIDE
     Dosage: 12.5 MG, AS NEEDED
     Route: 048

REACTIONS (11)
  - Arthralgia [Not Recovered/Not Resolved]
  - Onychomycosis [Not Recovered/Not Resolved]
  - Heart rate increased [Unknown]
  - Dyspnoea [Unknown]
  - Nail disorder [Unknown]
  - Night sweats [Not Recovered/Not Resolved]
  - Peripheral swelling [Not Recovered/Not Resolved]
  - Sleep disorder [Not Recovered/Not Resolved]
  - Palpitations [Unknown]
  - Nasopharyngitis [Recovered/Resolved]
  - Productive cough [Recovered/Resolved]

NARRATIVE: CASE EVENT DATE: 201502
